FAERS Safety Report 6966934-9 (Version None)
Quarter: 2010Q3

REPORT INFORMATION
  Report Type: 
  Country: None (occurrence: None)
  Receive Date: 20100906
  Receipt Date: 20100706
  Transmission Date: 20110219
  Serious: No
  Sender: FDA-Public Use
  Company Number: US-ALLERGAN-1008803US

PATIENT
  Age: 21 Year
  Sex: Female

DRUGS (3)
  1. ACZONE [Suspect]
     Indication: ACNE
     Dosage: UNK
     Route: 061
  2. TRETINOIN [Concomitant]
     Indication: ACNE
     Dosage: UNK, EVERY OTHER NIGHT
  3. EPIDUO [Concomitant]
     Indication: ACNE

REACTIONS (1)
  - RASH [None]
